FAERS Safety Report 9286626 (Version 1)
Quarter: 2013Q2

REPORT INFORMATION
  Report Type: Spontaneous
  Country: US (occurrence: US)
  Receive Date: 20130513
  Receipt Date: 20130513
  Transmission Date: 20140414
  Serious: Yes (Other)
  Sender: FDA-Public Use
  Company Number: US-TEVA-402428USA

PATIENT
  Age: 66 Year
  Sex: Female

DRUGS (3)
  1. MYCOPHENOLATE MOFETIL [Suspect]
     Indication: DERMATOMYOSITIS
     Dates: start: 20130101
  2. PREDNISONE [Concomitant]
  3. LANSOPRAZOLE [Concomitant]

REACTIONS (4)
  - Pharyngeal oedema [Unknown]
  - Weight decreased [Unknown]
  - Stomatitis [Unknown]
  - Dysphagia [Unknown]
